FAERS Safety Report 16350484 (Version 2)
Quarter: 2019Q2

REPORT INFORMATION
  Report Type: Spontaneous
  Country: US (occurrence: US)
  Receive Date: 20190524
  Receipt Date: 20190604
  Transmission Date: 20190711
  Serious: Yes (Hospitalization, Disabling, Other)
  Sender: FDA-Public Use
  Company Number: US-MACLEODS PHARMACEUTICALS US LTD-MAC2019021365

PATIENT

DRUGS (2)
  1. TRIAMCINOLONE [Suspect]
     Active Substance: TRIAMCINOLONE
     Indication: OSTEOARTHRITIS
     Dosage: 80 MILLIGRAM, 1 TOTAL INTRAARTICULAR LEFT HIP INJECTION
     Route: 014
  2. LIDOCAINE 1% [Concomitant]
     Active Substance: LIDOCAINE
     Indication: OSTEOARTHRITIS
     Dosage: 3 MILLILITER, 1 TOTAL INTRAARTICULAR LEFT HIP INJECTION
     Route: 014

REACTIONS (1)
  - Osteonecrosis [Recovered/Resolved]
